FAERS Safety Report 9816439 (Version 1)
Quarter: 2014Q1

REPORT INFORMATION
  Report Type: Spontaneous
  Country: BR (occurrence: BR)
  Receive Date: 20140114
  Receipt Date: 20140114
  Transmission Date: 20141002
  Serious: Yes (Hospitalization, Other)
  Sender: FDA-Public Use
  Company Number: BR-MERCK-1401BRA005310

PATIENT
  Age: 1 Year
  Sex: Female
  Weight: 10 kg

DRUGS (3)
  1. DESALEX [Suspect]
     Indication: RHINITIS ALLERGIC
     Dosage: 2 ML, QD
     Route: 048
     Dates: start: 20131219, end: 20131219
  2. ASCORBIC ACID [Concomitant]
     Indication: PROPHYLAXIS
     Dosage: UNK, QOD
     Dates: start: 201306
  3. IRON (UNSPECIFIED) [Concomitant]
     Indication: ANAEMIA PROPHYLAXIS
     Dosage: UNK, QOD
     Dates: start: 201306

REACTIONS (2)
  - Laryngeal oedema [Recovering/Resolving]
  - Anaphylactic reaction [Recovering/Resolving]
